FAERS Safety Report 8808596 (Version 2)
Quarter: 2012Q4

REPORT INFORMATION
  Report Type: 
  Country: US (occurrence: US)
  Receive Date: 20120926
  Receipt Date: 20121004
  Transmission Date: 20130627
  Serious: No
  Sender: FDA-Public Use
  Company Number: US-PFIZER INC-2012233892

PATIENT
  Sex: Female

DRUGS (1)
  1. DEPO-PROVERA [Suspect]
     Dosage: 150 mg, UNK
     Route: 030

REACTIONS (3)
  - Product quality issue [Unknown]
  - Incorrect drug administration rate [Unknown]
  - Injection site mass [Unknown]
